APPROVED DRUG PRODUCT: MITOXANTRONE HYDROCHLORIDE
Active Ingredient: MITOXANTRONE HYDROCHLORIDE
Strength: EQ 25MG BASE/12.5ML (EQ 2MG BASE/ML)
Dosage Form/Route: INJECTABLE;INJECTION
Application: A077496 | Product #002 | TE Code: AP
Applicant: FRESENIUS KABI USA LLC
Approved: Apr 11, 2006 | RLD: No | RS: No | Type: RX